FAERS Safety Report 24440157 (Version 1)
Quarter: 2024Q4

REPORT INFORMATION
  Report Type: Report from Study
  Country: BE (occurrence: BE)
  Receive Date: 20241016
  Receipt Date: 20241016
  Transmission Date: 20250115
  Serious: Yes (Other)
  Sender: ABBVIE
  Company Number: BE-JNJFOC-20170313130

PATIENT
  Age: 66 Year
  Sex: Male

DRUGS (1)
  1. IBRUTINIB [Suspect]
     Active Substance: IBRUTINIB
     Indication: Chronic lymphocytic leukaemia
     Route: 048
     Dates: start: 20150928, end: 20200202

REACTIONS (9)
  - Cataract [Recovered/Resolved]
  - Back pain [Not Recovered/Not Resolved]
  - Agitation [Recovered/Resolved]
  - Skin infection [Recovered/Resolved]
  - Malaise [Recovered/Resolved]
  - Localised infection [Recovered/Resolved]
  - Insomnia [Not Recovered/Not Resolved]
  - Impaired healing [Recovered/Resolved]
  - Obstructive sleep apnoea syndrome [Not Recovered/Not Resolved]

NARRATIVE: CASE EVENT DATE: 20160905
